FAERS Safety Report 6803342-5 (Version None)
Quarter: 2010Q2

REPORT INFORMATION
  Report Type: 
  Country: None (occurrence: None)
  Receive Date: 20100628
  Receipt Date: 20100615
  Transmission Date: 20101027
  Serious: Yes (Hospitalization)
  Sender: FDA-Public Use
  Company Number: DE-ROCHE-703439

PATIENT
  Sex: Female
  Weight: 44.5 kg

DRUGS (4)
  1. BEVACIZUMAB [Suspect]
     Route: 042
     Dates: start: 20100329
  2. PACLITAXEL [Concomitant]
     Route: 042
     Dates: start: 20100529
  3. FORTECORTIN [Concomitant]
     Indication: NAUSEA
     Route: 048
  4. NOVALGIN [Concomitant]
     Dosage: AS REQUIRED

REACTIONS (1)
  - ASCITES [None]
